FAERS Safety Report 24557748 (Version 1)
Quarter: 2024Q4

REPORT INFORMATION
  Report Type: Spontaneous
  Country: ZA (occurrence: ZA)
  Receive Date: 20241028
  Receipt Date: 20241028
  Transmission Date: 20250114
  Serious: Yes (Other)
  Sender: NOVARTIS
  Company Number: ZA-002147023-NVSC2024ZA205650

PATIENT

DRUGS (2)
  1. TRAMETINIB [Suspect]
     Active Substance: TRAMETINIB
     Indication: Product used for unknown indication
     Dosage: 1 DOSAGE FORM, QD (1 PER DAY)
     Route: 065
     Dates: start: 2020
  2. DABRAFENIB [Concomitant]
     Active Substance: DABRAFENIB
     Indication: Product used for unknown indication
     Dosage: 4 DOSAGE FORM, QD (4 PER DAY)
     Route: 065

REACTIONS (8)
  - Febrile convulsion [Unknown]
  - Hot flush [Unknown]
  - Pyrexia [Unknown]
  - Dizziness [Unknown]
  - Night sweats [Unknown]
  - Retching [Unknown]
  - Sensitivity to weather change [Unknown]
  - Asthenia [Unknown]
